FAERS Safety Report 13558373 (Version 2)
Quarter: 2017Q2

REPORT INFORMATION
  Report Type: Report from Study
  Country: US (occurrence: US)
  Receive Date: 20170517
  Receipt Date: 20170531
  Transmission Date: 20170830
  Serious: No
  Sender: FDA-Public Use
  Company Number: US-AMGEN-USASL2017071537

PATIENT
  Age: 5 Year
  Sex: Male

DRUGS (1)
  1. ENBREL [Suspect]
     Active Substance: ETANERCEPT
     Indication: PSORIASIS
     Dosage: 16 MG, QWK
     Route: 065

REACTIONS (6)
  - Injection site swelling [Unknown]
  - Alopecia [Unknown]
  - Injection site erythema [Unknown]
  - Injection site rash [Unknown]
  - Dry skin [Unknown]
  - Erythema [Unknown]
